FAERS Safety Report 9421025 (Version 1)
Quarter: 2013Q3

REPORT INFORMATION
  Report Type: Other
  Country: IT (occurrence: IT)
  Receive Date: 20130725
  Receipt Date: 20130725
  Transmission Date: 20140515
  Serious: Yes (Other)
  Sender: FDA-Public Use
  Company Number: IT-BRISTOL-MYERS SQUIBB COMPANY-19112341

PATIENT
  Age: 34 Year
  Sex: Male

DRUGS (5)
  1. CISPLATIN [Suspect]
     Indication: TESTICULAR GERM CELL CANCER
     Dosage: DAYS 1 AND 2 AND EVERY 21 DAYS
  2. CARBOPLATIN [Suspect]
     Indication: TESTICULAR GERM CELL CANCER
     Dosage: INF 250 MG/M2 ON DAY 2,AGAIN ON DAYS 1-5.
  3. ETOPOSIDE [Suspect]
     Indication: TESTICULAR GERM CELL CANCER
     Dosage: 165 MG/M2 ON DAYS 1-3.AGAIN 100 MG/M2 ON DAYS 1-3, 300 MG/M2 ON DAYS 1-5
  4. IFOSFAMIDE [Suspect]
     Indication: TESTICULAR GERM CELL CANCER
     Dosage: INF 5000 MG/M2 FOR 24 HOURS ON DAY 2,AGAIN 1500 MG/M2 ON DAYS 1-5.
  5. PACLITAXEL [Suspect]
     Indication: TESTICULAR GERM CELL CANCER
     Dosage: ON DAY 1

REACTIONS (7)
  - Malignant neoplasm progression [Unknown]
  - Haematotoxicity [Recovering/Resolving]
  - Febrile neutropenia [Unknown]
  - Gastrointestinal toxicity [Unknown]
  - Stem cell transplant [Unknown]
  - Nausea [Unknown]
  - Vomiting [Unknown]
